FAERS Safety Report 9645646 (Version 2)
Quarter: 2013Q4

REPORT INFORMATION
  Report Type: Report from Study
  Country: JP (occurrence: JP)
  Receive Date: 20131025
  Receipt Date: 20131025
  Transmission Date: 20140711
  Serious: Yes (Death, Other)
  Sender: FDA-Public Use
  Company Number: JP-TAKEDA-TCI2013A04748

PATIENT
  Age: 77 Year
  Sex: Female
  Weight: 43 kg

DRUGS (3)
  1. NESINA TABLETS 25MG [Suspect]
     Indication: TYPE 2 DIABETES MELLITUS
     Dosage: 25 MG, QD
     Route: 048
     Dates: start: 20111117, end: 20130117
  2. DEPAS [Concomitant]
     Route: 048
     Dates: end: 20130117
  3. VESICARE [Concomitant]
     Indication: HYPERTONIC BLADDER
     Route: 048
     Dates: start: 20120302, end: 20130117

REACTIONS (1)
  - Cardiac failure acute [Fatal]
